FAERS Safety Report 21966384 (Version 1)
Quarter: 2023Q1

REPORT INFORMATION
  Report Type: Spontaneous
  Country: DE (occurrence: DE)
  Receive Date: 20230208
  Receipt Date: 20230208
  Transmission Date: 20230418
  Serious: Yes (Other)
  Sender: FDA-Public Use
  Company Number: DE-002147023-NVSC2023DE024568

PATIENT

DRUGS (4)
  1. LAPATINIB [Suspect]
     Active Substance: LAPATINIB
     Indication: Adenocarcinoma pancreas
     Dosage: 1500 MG, CYCLIC
     Route: 048
  2. LEUCOVORIN CALCIUM [Suspect]
     Active Substance: LEUCOVORIN CALCIUM
     Indication: Adenocarcinoma pancreas
     Dosage: 200 MG/M2, QD (30 MIN) (DAYS 1,8,15 AND 22 OF A 43 DAY CYCLE)
     Route: 065
  3. OXALIPLATIN [Suspect]
     Active Substance: OXALIPLATIN
     Indication: Adenocarcinoma pancreas
     Dosage: 85 MG/M2, (2H INFUSION) DAYS 8 AND 22
     Route: 065
  4. FLUOROURACIL [Suspect]
     Active Substance: FLUOROURACIL
     Indication: Adenocarcinoma pancreas
     Dosage: 2000 MG/M2, Q24H ON DAYS 1,8,15, AND 22, OF A 43-DAY CYCLE CONTINUOUS INFUSION
     Route: 065

REACTIONS (2)
  - Diarrhoea [Unknown]
  - Product use in unapproved indication [Unknown]
